FAERS Safety Report 7703165-9 (Version None)
Quarter: 2011Q3

REPORT INFORMATION
  Report Type: 
  Country: None (occurrence: None)
  Receive Date: 20110823
  Receipt Date: 20110822
  Transmission Date: 20111222
  Serious: Yes (Other)
  Sender: FDA-Public Use
  Company Number: NO-PFIZER INC-2011193516

PATIENT
  Age: 37 Year
  Sex: Female

DRUGS (1)
  1. NEURONTIN [Suspect]
     Dosage: UNK

REACTIONS (10)
  - NAUSEA [None]
  - LISTLESS [None]
  - PRURITUS [None]
  - MALAISE [None]
  - WEIGHT DECREASED [None]
  - MOOD SWINGS [None]
  - BACK PAIN [None]
  - HYPOAESTHESIA [None]
  - ARTHRALGIA [None]
  - APHASIA [None]
